FAERS Safety Report 11185700 (Version 2)
Quarter: 2015Q3

REPORT INFORMATION
  Report Type: Spontaneous
  Country: US (occurrence: US)
  Receive Date: 20150612
  Receipt Date: 20150805
  Transmission Date: 20151125
  Serious: Yes (Disabling)
  Sender: FDA-Public Use
  Company Number: US-009507513-1506USA004658

PATIENT
  Age: 59 Year
  Sex: Male
  Weight: 88.44 kg

DRUGS (3)
  1. JANUVIA [Suspect]
     Active Substance: SITAGLIPTIN PHOSPHATE
     Indication: TYPE 2 DIABETES MELLITUS
     Dosage: DAILY DOSE UNKNOWN
     Route: 048
  2. VITAMINS (UNSPECIFIED) [Concomitant]
     Active Substance: VITAMINS
  3. PRILOSEC [Concomitant]
     Active Substance: OMEPRAZOLE MAGNESIUM

REACTIONS (1)
  - Pancreatitis [Not Recovered/Not Resolved]

NARRATIVE: CASE EVENT DATE: 20140905
